FAERS Safety Report 17358864 (Version 1)
Quarter: 2020Q1

REPORT INFORMATION
  Report Type: Spontaneous
  Country: US (occurrence: US)
  Receive Date: 20200202
  Receipt Date: 20200202
  Transmission Date: 20200409
  Serious: Yes (Other)
  Sender: FDA-Public Use
  Company Number: US-TEVA-2020-US-1176712

PATIENT
  Sex: Female

DRUGS (1)
  1. QVAR REDIHALER [Suspect]
     Active Substance: BECLOMETHASONE DIPROPIONATE
     Route: 065

REACTIONS (4)
  - Influenza A virus test positive [Unknown]
  - Visual impairment [Recovered/Resolved]
  - Drug delivery system issue [Unknown]
  - Chronic obstructive pulmonary disease [Unknown]
